FAERS Safety Report 13180498 (Version 2)
Quarter: 2017Q2

REPORT INFORMATION
  Report Type: Spontaneous
  Country: CA (occurrence: CA)
  Receive Date: 20170202
  Receipt Date: 20170606
  Transmission Date: 20170830
  Serious: Yes (Other)
  Sender: FDA-Public Use
  Company Number: CA-JNJFOC-20170123200

PATIENT
  Age: 68 Year
  Sex: Male

DRUGS (3)
  1. PREDNISONE. [Suspect]
     Active Substance: PREDNISONE
     Indication: COLITIS ULCERATIVE
     Route: 065
  2. INFLIXIMAB, RECOMBINANT [Suspect]
     Active Substance: INFLIXIMAB
     Indication: COLITIS ULCERATIVE
     Route: 042
  3. PREDNISONE. [Suspect]
     Active Substance: PREDNISONE
     Indication: COLITIS ULCERATIVE
     Route: 065

REACTIONS (2)
  - Mycobacterium chelonae infection [Recovering/Resolving]
  - Drug ineffective [Unknown]
